FAERS Safety Report 23923259 (Version 1)
Quarter: 2024Q2

REPORT INFORMATION
  Report Type: Report from Study
  Country: US (occurrence: US)
  Receive Date: 20240531
  Receipt Date: 20240531
  Transmission Date: 20240716
  Serious: Yes (Other)
  Sender: FDA-Public Use
  Company Number: US-ABBVIE-5780327

PATIENT
  Age: 48 Year
  Sex: Female

DRUGS (3)
  1. RINVOQ [Suspect]
     Active Substance: UPADACITINIB
     Indication: Dermatitis atopic
     Route: 048
     Dates: start: 20240505
  2. AUSTEDO [Concomitant]
     Active Substance: DEUTETRABENAZINE
     Indication: Tardive dyskinesia
     Dosage: AUSTEDO XR
     Dates: start: 202312
  3. DUPIXENT [Concomitant]
     Active Substance: DUPILUMAB
     Indication: Neurodermatitis
     Dates: start: 202311

REACTIONS (2)
  - Haemorrhoid operation [Unknown]
  - Dermal cyst [Unknown]

NARRATIVE: CASE EVENT DATE: 20240501
